FAERS Safety Report 7477158-3 (Version None)
Quarter: 2011Q2

REPORT INFORMATION
  Report Type: 
  Country: None (occurrence: None)
  Receive Date: 20110512
  Receipt Date: 20110215
  Transmission Date: 20111010
  Serious: No
  Sender: FDA-Public Use
  Company Number: US-NOVEN-11US001790

PATIENT
  Sex: Male

DRUGS (3)
  1. PREVACID [Concomitant]
     Indication: GASTROOESOPHAGEAL REFLUX DISEASE
     Dosage: 30 MG, UNK
     Route: 048
  2. CLONIDINE [Concomitant]
     Indication: INSOMNIA
     Dosage: 3 MG, BEDTIME
     Route: 048
  3. DAYTRANA [Suspect]
     Indication: ATTENTION DEFICIT/HYPERACTIVITY DISORDER
     Dosage: 15 MG, QD
     Route: 062
     Dates: start: 20090101

REACTIONS (2)
  - OBSTRUCTIVE UROPATHY [None]
  - HYPERCALCIURIA [None]
